FAERS Safety Report 4541179-0 (Version None)
Quarter: 2004Q4

REPORT INFORMATION
  Report Type: 
  Country: None (occurrence: None)
  Receive Date: 20041227
  Receipt Date: 20041206
  Transmission Date: 20050328
  Serious: No
  Sender: FDA-Public Use
  Company Number: 9413

PATIENT
  Age: 55 Year
  Sex: Male

DRUGS (4)
  1. VINBLASTINE SULFATE [Suspect]
     Indication: HODGKIN'S DISEASE
     Dosage: 3 MG/M2 PER_CYCLE/1.5 MG/M2 PER _CYCLE
  2. DOXORUBICIN HCL [Suspect]
     Indication: HODGKIN'S DISEASE
  3. BLEOMYCIN [Suspect]
     Indication: HODGKIN'S DISEASE
  4. DACARBAZINE [Suspect]
     Indication: HODGKIN'S DISEASE

REACTIONS (3)
  - LIVER FUNCTION TEST ABNORMAL [None]
  - POLYNEUROPATHY [None]
  - SENSORIMOTOR DISORDER [None]
